FAERS Safety Report 8873936 (Version 1)
Quarter: 2012Q4

REPORT INFORMATION
  Report Type: 
  Country: US (occurrence: US)
  Receive Date: 20121030
  Receipt Date: 20121030
  Transmission Date: 20130627
  Serious: Yes (Other)
  Sender: FDA-Public Use
  Company Number: CHPA2012US022192

PATIENT
  Age: 85 Year
  Sex: Female

DRUGS (3)
  1. SLOW FE BROWN [Suspect]
     Indication: HAEMOGLOBIN DECREASED
     Dosage: 1 to 2 pills daily
     Route: 048
     Dates: start: 2009
  2. SLOW FE BROWN [Suspect]
     Dosage: 4 pills daily
     Route: 048
  3. CHEMOTHERAPEUTICS [Concomitant]
     Dosage: UNK
     Dates: start: 2006

REACTIONS (5)
  - Haemoglobin decreased [Recovered/Resolved]
  - Lethargy [Recovered/Resolved]
  - Abnormal behaviour [Recovered/Resolved]
  - Therapeutic response unexpected [Unknown]
  - Overdose [Unknown]
